FAERS Safety Report 7930403-X (Version None)
Quarter: 2011Q4

REPORT INFORMATION
  Report Type: 
  Country: None (occurrence: None)
  Receive Date: 20111117
  Receipt Date: 20111117
  Transmission Date: 20120403
  Serious: No
  Sender: FDA-Public Use
  Company Number: None

PATIENT
  Age: 83 Year
  Sex: Female
  Weight: 39.4629 kg

DRUGS (2)
  1. RECLAST [Suspect]
     Indication: OSTEOPOROSIS PROPHYLAXIS
     Dosage: 1 PER YR.
     Dates: start: 20110609
  2. RECLAST [Suspect]
     Indication: OSTEOPOROSIS PROPHYLAXIS
     Dosage: 1 PER YR.
     Dates: start: 20100608

REACTIONS (3)
  - OSTEONECROSIS OF JAW [None]
  - PAIN IN JAW [None]
  - BONE PAIN [None]
